FAERS Safety Report 12729816 (Version 7)
Quarter: 2018Q2

REPORT INFORMATION
  Report Type: Spontaneous
  Country: DE (occurrence: DE)
  Receive Date: 20160909
  Receipt Date: 20180416
  Transmission Date: 20180711
  Serious: Yes (Other)
  Sender: FDA-Public Use
  Company Number: DE-LUNDBECK-DKLU2019122

PATIENT
  Age: 65 Year
  Sex: Female

DRUGS (13)
  1. ARTESUNATE [Suspect]
     Active Substance: ARTESUNATE
     Indication: GLIOBLASTOMA MULTIFORME
  2. LORAZEPAM. [Suspect]
     Active Substance: LORAZEPAM
     Indication: PARTIAL SEIZURES
  3. TEMOZOLOMIDE. [Suspect]
     Active Substance: TEMOZOLOMIDE
     Indication: GLIOBLASTOMA MULTIFORME
     Route: 048
     Dates: start: 2014
  4. CLOBAZAM [Suspect]
     Active Substance: CLOBAZAM
     Indication: EPILEPSY
     Route: 048
  5. ONDANSETRON [Suspect]
     Active Substance: ONDANSETRON
     Indication: PROPHYLAXIS OF NAUSEA AND VOMITING
     Route: 065
  6. TEMOZOLOMIDE. [Suspect]
     Active Substance: TEMOZOLOMIDE
     Route: 065
  7. VALPROIC ACID. [Suspect]
     Active Substance: VALPROIC ACID
     Indication: GLIOBLASTOMA MULTIFORME
  8. LORAZEPAM. [Suspect]
     Active Substance: LORAZEPAM
     Indication: EPILEPSY
     Route: 048
  9. LEVETIRACETAM. [Suspect]
     Active Substance: LEVETIRACETAM
     Indication: EPILEPSY
     Route: 065
  10. ARTESUNATE [Suspect]
     Active Substance: ARTESUNATE
     Indication: MALARIA PROPHYLAXIS
     Route: 048
     Dates: start: 20150920, end: 20151020
  11. CLOBAZAM [Suspect]
     Active Substance: CLOBAZAM
     Indication: PARTIAL SEIZURES
  12. VALPROIC ACID. [Suspect]
     Active Substance: VALPROIC ACID
     Indication: EPILEPSY
     Route: 065
  13. LEVETIRACETAM. [Suspect]
     Active Substance: LEVETIRACETAM
     Indication: PARTIAL SEIZURES
     Route: 065

REACTIONS (14)
  - Drug-induced liver injury [Recovered/Resolved]
  - Weight decreased [Recovered/Resolved]
  - Leukopenia [Unknown]
  - Dyspepsia [Recovered/Resolved]
  - Fatigue [Recovered/Resolved]
  - Nausea [Recovered/Resolved]
  - Asthenia [Recovered/Resolved]
  - Depressed mood [Recovered/Resolved]
  - Condition aggravated [Unknown]
  - Hepatotoxicity [Recovered/Resolved]
  - Drug interaction [Unknown]
  - Chest pain [Recovering/Resolving]
  - Intentional product misuse [Unknown]
  - Overdose [Unknown]

NARRATIVE: CASE EVENT DATE: 20150101
